FAERS Safety Report 8969161 (Version 1)
Quarter: 2012Q4

REPORT INFORMATION
  Report Type: 
  Country: US (occurrence: US)
  Receive Date: 20121218
  Receipt Date: 20121218
  Transmission Date: 20130627
  Serious: Yes (Hospitalization)
  Sender: FDA-Public Use
  Company Number: US-009507513-1212USA004291

PATIENT
  Age: 58 Year
  Sex: Male
  Weight: 110 kg

DRUGS (15)
  1. TEMODAR [Suspect]
     Indication: GLIOBLASTOMA MULTIFORME
     Dosage: 200 mg/m2, qd
     Route: 048
     Dates: start: 20090223, end: 20090227
  2. BEVACIZUMAB [Suspect]
     Indication: GLIOBLASTOMA MULTIFORME
     Dosage: 10 mg/kg, q2w
     Route: 065
     Dates: start: 20090223, end: 20090223
  3. IRINOTECAN HYDROCHLORIDE [Suspect]
     Indication: GLIOBLASTOMA MULTIFORME
     Dosage: 125 mg/m2, q2w
     Route: 065
     Dates: start: 20090223
  4. VYTORIN [Concomitant]
     Route: 048
  5. LEXAPRO [Concomitant]
     Route: 048
  6. DIOVAN [Concomitant]
     Dosage: 160 mg, qd
     Route: 048
  7. NEXIUM [Concomitant]
     Dosage: 40 mg, qd
     Route: 048
  8. CALTRATE [Concomitant]
     Dosage: UNK, bid
     Route: 048
  9. ZOFRAN [Concomitant]
     Dosage: 8 mg, prn
     Route: 048
  10. PROTONIX [Concomitant]
     Dosage: 40 mg, qd
     Route: 048
  11. ZOCOR [Concomitant]
     Dosage: 40 mg, qd
     Route: 048
  12. TYLENOL [Concomitant]
     Dosage: 650 mg, prn
     Route: 048
  13. ATIVAN [Concomitant]
     Dosage: 1 mg, prn
     Route: 048
  14. VITAMINS (UNSPECIFIED) [Concomitant]
     Dosage: UNK, qd
  15. PHENERGAN (PROMETHAZINE HYDROCHLORIDE) [Concomitant]
     Dosage: 25 mg, prn
     Route: 048

REACTIONS (3)
  - Pulmonary embolism [Recovered/Resolved]
  - Pyrexia [Recovered/Resolved]
  - Dyspnoea [Recovered/Resolved]
